FAERS Safety Report 5327320-0 (Version None)
Quarter: 2007Q2

REPORT INFORMATION
  Report Type: 
  Country: None (occurrence: None)
  Receive Date: 20070511
  Receipt Date: 20070501
  Transmission Date: 20071010
  Serious: Yes (Hospitalization)
  Sender: FDA-Public Use
  Company Number: 163-21880-06111279

PATIENT
  Age: 62 Year
  Sex: Female

DRUGS (3)
  1. REVLIMID [Suspect]
     Indication: MULTIPLE MYELOMA
     Dosage: 10 MG, QHS X 21 DAYS, ORAL
     Route: 048
     Dates: start: 20061208
  2. REVLIMID [Suspect]
     Indication: MULTIPLE MYELOMA
     Dosage: 15 MG, 1 IN 1 D, ORAL
     Route: 048
     Dates: start: 20061027
  3. DECADRON [Suspect]
     Indication: MULTIPLE MYELOMA

REACTIONS (3)
  - ACIDOSIS [None]
  - BLOOD POTASSIUM INCREASED [None]
  - MUSCLE SPASMS [None]
